FAERS Safety Report 6848705-7 (Version None)
Quarter: 2010Q3

REPORT INFORMATION
  Report Type: 
  Country: None (occurrence: None)
  Receive Date: 20100716
  Receipt Date: 20070906
  Transmission Date: 20110219
  Serious: No
  Sender: FDA-Public Use
  Company Number: US-PFIZER INC-2007075600

PATIENT
  Sex: Female
  Weight: 68 kg

DRUGS (3)
  1. CHANTIX [Suspect]
     Indication: SMOKING CESSATION THERAPY
     Route: 048
     Dates: start: 20060101
  2. ALBUTEROL [Concomitant]
     Indication: ASTHMA
     Route: 055
  3. MOMETASONE FUROATE [Concomitant]
     Indication: ASTHMA
     Route: 055

REACTIONS (1)
  - NAUSEA [None]
